FAERS Safety Report 19320192 (Version 1)
Quarter: 2021Q2

REPORT INFORMATION
  Report Type: Report from Study
  Country: GB (occurrence: GB)
  Receive Date: 20210527
  Receipt Date: 20210527
  Transmission Date: 20210717
  Serious: Yes (Other)
  Sender: FDA-Public Use
  Company Number: GB-SEATTLE GENETICS-2021SGN00563

PATIENT
  Sex: Female

DRUGS (1)
  1. BRENTUXIMAB VEDOTIN?MPI [Suspect]
     Active Substance: BRENTUXIMAB VEDOTIN
     Indication: PERIPHERAL T-CELL LYMPHOMA UNSPECIFIED
     Dosage: 165 MILLIGRAM
     Route: 065
     Dates: start: 20210107

REACTIONS (2)
  - Off label use [Unknown]
  - Erythema multiforme [Unknown]
